FAERS Safety Report 5362976-8 (Version None)
Quarter: 2007Q2

REPORT INFORMATION
  Report Type: 
  Country: None (occurrence: None)
  Receive Date: 20070615
  Receipt Date: 20070607
  Transmission Date: 20071010
  Serious: Yes (Other)
  Sender: FDA-Public Use
  Company Number: FABR-12031

PATIENT
  Age: 52 Year
  Sex: Male
  Weight: 68 kg

DRUGS (6)
  1. FABRAZYME [Suspect]
     Indication: FABRY'S DISEASE
     Dosage: 1 MG/KG Q2WS IV
     Route: 042
     Dates: start: 19990618
  2. FABRAZYME [Suspect]
     Indication: FABRY'S DISEASE
     Dosage: 1 MG/KG Q2WKS IV
     Route: 042
     Dates: start: 19991206
  3. FABRAZYME [Suspect]
     Indication: FABRY'S DISEASE
     Dosage: 70 MG Q2WKS IV
     Route: 042
  4. PROGRAF [Concomitant]
  5. CELLCEPT [Concomitant]
  6. AMLODIPINE [Concomitant]

REACTIONS (1)
  - ASTHMA [None]
